FAERS Safety Report 4513176-2 (Version None)
Quarter: 2004Q4

REPORT INFORMATION
  Report Type: 
  Country: None (occurrence: None)
  Receive Date: 20041124
  Receipt Date: 20041112
  Transmission Date: 20050328
  Serious: Yes (Death, Other)
  Sender: FDA-Public Use
  Company Number: USA-2004-0013994

PATIENT
  Age: 33 Year
  Sex: Female

DRUGS (6)
  1. OXYCONTIN [Suspect]
  2. OXYIR (OXYCODONE HYDFROCHLORIDE) [Suspect]
     Dosage: MG
  3. PROPOXYPHENE (DEXTROPROPOXYPHENE) [Suspect]
  4. BUPROPION HCL [Suspect]
  5. GABAPENTIN [Suspect]
  6. ACETAMINOPHEN [Suspect]

REACTIONS (19)
  - AORTIC ATHEROSCLEROSIS [None]
  - BRAIN OEDEMA [None]
  - CARDIAC ARREST [None]
  - COMA [None]
  - CORONARY ARTERY ATHEROSCLEROSIS [None]
  - COUGH [None]
  - DRUG DEPENDENCE [None]
  - DYSPNOEA [None]
  - EMPHYSEMA [None]
  - FEELING ABNORMAL [None]
  - GOITRE [None]
  - MULTIPLE DRUG OVERDOSE ACCIDENTAL [None]
  - PNEUMONIA [None]
  - PNEUMONIA ASPIRATION [None]
  - POLYSUBSTANCE ABUSE [None]
  - PULMONARY CONGESTION [None]
  - PULMONARY OEDEMA [None]
  - RESPIRATORY DEPRESSION [None]
  - RESUSCITATION [None]
